FAERS Safety Report 7624548-1 (Version None)
Quarter: 2011Q3

REPORT INFORMATION
  Report Type: 
  Country: None (occurrence: None)
  Receive Date: 20110720
  Receipt Date: 20110712
  Transmission Date: 20111222
  Serious: Yes (Hospitalization)
  Sender: FDA-Public Use
  Company Number: PHHY2011NL62352

PATIENT
  Sex: Male

DRUGS (9)
  1. ZOMETA [Suspect]
     Indication: PROSTATE CANCER METASTATIC
     Dosage: 4 MG/ 5 ML, ONCE PER 28 DAYS
     Route: 042
     Dates: start: 20110222
  2. LEUPROLIDE ACETATE [Concomitant]
  3. ZOMETA [Suspect]
     Dosage: 4 MG/ 5 ML, ONCE PER 28 DAYS
     Route: 042
     Dates: start: 20110614, end: 20110712
  4. ZOMETA [Suspect]
     Dosage: UNK
  5. FLUTAMIDE [Concomitant]
  6. CALCICHEW D3 [Concomitant]
  7. ASCAL [Concomitant]
  8. ACETAMINOPHEN [Concomitant]
  9. FUROSEMIDE [Concomitant]

REACTIONS (3)
  - MYOCARDIAL INFARCTION [None]
  - RENAL IMPAIRMENT [None]
  - MALAISE [None]
